FAERS Safety Report 9539441 (Version 1)
Quarter: 2013Q3

REPORT INFORMATION
  Report Type: Not Available
  Country: NL (occurrence: NL)
  Receive Date: 20130920
  Receipt Date: 20130920
  Transmission Date: 20140515
  Serious: Yes (Life-Threatening, Hospitalization)
  Sender: FDA-Public Use
  Company Number: NL-NAPPMUNDI-GBR-2013-0015687

PATIENT
  Age: 53 Year
  Sex: Female
  Weight: 86 kg

DRUGS (4)
  1. OXYCONTIN 10 MG [Suspect]
     Indication: PAIN
     Dosage: 20 MG, QID
     Route: 048
     Dates: start: 20080715, end: 20080729
  2. VENLAFAXINE [Interacting]
     Indication: PRODUCT USED FOR UNKNOWN INDICATION
     Dosage: 150 MG, DAILY
     Dates: start: 20041111
  3. VENLAFAXINE [Interacting]
     Dosage: 37.5 MG, DAILY
     Dates: start: 20041111
  4. MICARDIS [Concomitant]
     Dosage: 40 MG, DAILY

REACTIONS (3)
  - Drug interaction [Recovering/Resolving]
  - Blood cholesterol increased [Recovering/Resolving]
  - Hypertension [Unknown]
